FAERS Safety Report 4617117-9 (Version None)
Quarter: 2005Q1

REPORT INFORMATION
  Report Type: 
  Country: None (occurrence: None)
  Receive Date: 20050321
  Receipt Date: 20050316
  Transmission Date: 20050727
  Serious: Yes (Other)
  Sender: FDA-Public Use
  Company Number: TCI2005A01404

PATIENT
  Age: 75 Year
  Sex: Male

DRUGS (5)
  1. LANSAP 800                   (LANSOPRAZOLE, CLARITHROMYCIN, AMOXICILLI [Suspect]
     Indication: GASTRIC ULCER
     Dosage: 0.5 CARD (0.5 CARD, 1 IN1 D) PER ORAL
     Route: 048
     Dates: start: 20041105, end: 20041105
  2. LANSAP 800                   (LANSOPRAZOLE, CLARITHROMYCIN, AMOXICILLI [Suspect]
     Indication: HELICOBACTER INFECTION
     Dosage: 0.5 CARD (0.5 CARD, 1 IN1 D) PER ORAL
     Route: 048
     Dates: start: 20041105, end: 20041105
  3. LANSAP 800                   (LANSOPRAZOLE, CLARITHROMYCIN, AMOXICILLI [Suspect]
     Indication: LOCAL ANTIBACTERIAL THERAPY
     Dosage: 0.5 CARD (0.5 CARD, 1 IN1 D) PER ORAL
     Route: 048
     Dates: start: 20041105, end: 20041105
  4. TEGRETOL [Concomitant]
  5. DEPAS (ETIZOLAM) [Concomitant]

REACTIONS (11)
  - ABDOMINAL PAIN LOWER [None]
  - ABDOMINAL PAIN UPPER [None]
  - CONDITION AGGRAVATED [None]
  - DIARRHOEA [None]
  - DRUG INEFFECTIVE [None]
  - GASTRIC OUTLET OBSTRUCTION [None]
  - GASTRIC ULCER [None]
  - GASTROINTESTINAL PAIN [None]
  - ORAL INTAKE REDUCED [None]
  - VOMITING [None]
  - WEIGHT DECREASED [None]
